FAERS Safety Report 13840261 (Version 4)
Quarter: 2017Q4

REPORT INFORMATION
  Report Type: Spontaneous
  Country: JP (occurrence: JP)
  Receive Date: 20170807
  Receipt Date: 20171219
  Transmission Date: 20180320
  Serious: Yes (Other)
  Sender: FDA-Public Use
  Company Number: JP-OTSUKA-2017_017011

PATIENT
  Age: 53 Year
  Sex: Male

DRUGS (8)
  1. HUMULIN R [Suspect]
     Active Substance: INSULIN HUMAN
     Indication: PRODUCT USED FOR UNKNOWN INDICATION
     Dosage: 7 UNITS, DAILY IN THREE DIVIDED DOSES
     Route: 058
     Dates: end: 20170725
  2. NEULEPTIL [Suspect]
     Active Substance: PERICIAZINE
     Dosage: 20 MG, BID
     Route: 048
     Dates: start: 20170809, end: 20170815
  3. SPIROPITAN [Suspect]
     Active Substance: SPIPERONE
     Indication: PRODUCT USED FOR UNKNOWN INDICATION
     Dosage: 9 MG, TID
     Route: 048
     Dates: end: 20170809
  4. SETOUS [Suspect]
     Active Substance: ZOTEPINE
     Indication: PRODUCT USED FOR UNKNOWN INDICATION
     Dosage: 200 MG, TID
     Route: 048
     Dates: end: 20170809
  5. ABILIFY MAINTENA [Suspect]
     Active Substance: ARIPIPRAZOLE
     Indication: SCHIZOPHRENIA
     Dosage: 400 MG, QM
     Route: 030
     Dates: start: 20170405, end: 20170701
  6. NEULEPTIL [Suspect]
     Active Substance: PERICIAZINE
     Indication: PRODUCT USED FOR UNKNOWN INDICATION
     Dosage: 50 MG, TID
     Route: 048
     Dates: end: 20170808
  7. ABILIFY [Suspect]
     Active Substance: ARIPIPRAZOLE
     Indication: SCHIZOPHRENIA
     Dosage: 12 MG, QD
     Route: 048
     Dates: start: 20170322, end: 20170726
  8. HUMULIN R [Suspect]
     Active Substance: INSULIN HUMAN
     Dosage: 4 UNITS, DAILY IN THREE DIVIDED DOSES
     Route: 058
     Dates: start: 20170726, end: 20170726

REACTIONS (3)
  - Blood glucose increased [Unknown]
  - Blood glucose fluctuation [Unknown]
  - Hypoglycaemia [Recovered/Resolved]

NARRATIVE: CASE EVENT DATE: 20170724
